FAERS Safety Report 18262818 (Version 1)
Quarter: 2020Q3

REPORT INFORMATION
  Report Type: Spontaneous
  Country: IN (occurrence: IN)
  Receive Date: 20200914
  Receipt Date: 20200914
  Transmission Date: 20201103
  Serious: Yes (Other)
  Sender: FDA-Public Use
  Company Number: IN-ALVOGEN-2020-ALVOGEN-114248

PATIENT
  Age: 78 Year
  Sex: Female

DRUGS (1)
  1. BUPROPION. [Suspect]
     Active Substance: BUPROPION
     Indication: PRODUCT USED FOR UNKNOWN INDICATION

REACTIONS (9)
  - Torticollis [Recovering/Resolving]
  - Oculogyric crisis [Unknown]
  - Dry mouth [Unknown]
  - Trismus [Recovering/Resolving]
  - Risus sardonicus [Unknown]
  - Dysphagia [Recovered/Resolved]
  - Spasmodic dysphonia [Recovering/Resolving]
  - Dystonia [Recovering/Resolving]
  - Macroglossia [Unknown]
